FAERS Safety Report 7801731-3 (Version None)
Quarter: 2011Q4

REPORT INFORMATION
  Report Type: 
  Country: None (occurrence: None)
  Receive Date: 20111007
  Receipt Date: 20110929
  Transmission Date: 20120403
  Serious: Yes (Hospitalization, Other)
  Sender: FDA-Public Use
  Company Number: JP-CEPHALON-2011005142

PATIENT
  Sex: Male
  Weight: 70 kg

DRUGS (9)
  1. BENDAMUSTINE HCL [Suspect]
     Route: 042
     Dates: start: 20110416, end: 20110417
  2. JUZENTAIHOTO [Concomitant]
  3. BENDAMUSTINE HCL [Suspect]
     Indication: MANTLE CELL LYMPHOMA
     Route: 042
     Dates: start: 20110124, end: 20110326
  4. ALLOPURINOL [Concomitant]
     Dates: start: 20110121, end: 20110307
  5. ACYCLOVIR [Concomitant]
  6. RITUXIMAB [Suspect]
     Indication: MANTLE CELL LYMPHOMA
     Route: 042
     Dates: start: 20110606
  7. BENDAMUSTINE HCL [Suspect]
     Route: 042
     Dates: start: 20110603, end: 20110707
  8. METHYLPREDNISOLONE [Concomitant]
     Dates: start: 20110123, end: 20110125
  9. PREDNISOLONE [Concomitant]

REACTIONS (6)
  - NEUTROPHIL COUNT DECREASED [None]
  - FEBRILE NEUTROPENIA [None]
  - WHITE BLOOD CELL COUNT DECREASED [None]
  - GASTROINTESTINAL HAEMORRHAGE [None]
  - PLATELET COUNT DECREASED [None]
  - ANAEMIA [None]
